FAERS Safety Report 16780958 (Version 1)
Quarter: 2019Q3

REPORT INFORMATION
  Report Type: Spontaneous
  Country: JP (occurrence: JP)
  Receive Date: 20190906
  Receipt Date: 20190906
  Transmission Date: 20191005
  Serious: Yes (Hospitalization)
  Sender: FDA-Public Use
  Company Number: JP-MYLANLABS-2019M1082696

PATIENT
  Age: 66 Year
  Sex: Male
  Weight: 71.9 kg

DRUGS (5)
  1. CARBOPLATIN INJ. 50MG ^NK^ [Suspect]
     Active Substance: CARBOPLATIN
     Indication: SQUAMOUS CELL CARCINOMA OF LUNG
     Dosage: UNK
     Route: 042
     Dates: start: 20190801, end: 20190826
  2. PROEMEND [Concomitant]
     Active Substance: FOSAPREPITANT
     Indication: PRODUCT USED FOR UNKNOWN INDICATION
     Route: 065
  3. SODIUM CHLORIDE. [Concomitant]
     Active Substance: SODIUM CHLORIDE
     Indication: PRODUCT USED FOR UNKNOWN INDICATION
     Route: 065
  4. DEXART [Concomitant]
     Active Substance: DEXAMETHASONE SODIUM PHOSPHATE
     Indication: PRODUCT USED FOR UNKNOWN INDICATION
     Route: 065
  5. GRANISETRON [Concomitant]
     Active Substance: GRANISETRON
     Indication: PRODUCT USED FOR UNKNOWN INDICATION
     Route: 065

REACTIONS (8)
  - Flushing [Recovered/Resolved]
  - Blood pressure decreased [Recovered/Resolved]
  - Feeling cold [Unknown]
  - Hypersensitivity [Recovered/Resolved]
  - Urticaria [Recovered/Resolved]
  - Erythema [Unknown]
  - Feeling abnormal [Unknown]
  - Pruritus [Unknown]

NARRATIVE: CASE EVENT DATE: 20190826
